FAERS Safety Report 4598973-X (Version None)
Quarter: 2005Q1

REPORT INFORMATION
  Report Type: 
  Country: None (occurrence: None)
  Receive Date: 20050304
  Receipt Date: 20050225
  Transmission Date: 20050727
  Serious: Yes (Death)
  Sender: FDA-Public Use
  Company Number: JP-MERCK-0503USA00186

PATIENT
  Age: 3 Day
  Sex: Female
  Weight: 3 kg

DRUGS (18)
  1. INSULIN [Concomitant]
     Indication: HYPERKALAEMIA
     Route: 065
  2. NAFAMOSTAT [Concomitant]
     Route: 065
  3. FUROSEMIDE [Concomitant]
     Indication: ANURIA
     Route: 065
  4. BLOOD CELLS, RED [Concomitant]
     Route: 065
  5. PLATELET CONCENTRATE [Concomitant]
     Route: 065
  6. BLOOD, PLASMA [Concomitant]
     Route: 065
  7. PEPCID [Suspect]
     Route: 065
  8. EPINEPHRINE [Concomitant]
     Indication: BRADYCARDIA
     Route: 065
  9. EPINEPHRINE [Concomitant]
     Indication: HYPOTENSION
     Route: 065
  10. DOBUTAMINE HYDROCHLORIDE AND DOPAMINE HYDROCHLORIDE [Concomitant]
     Route: 042
  11. DIAZEPAM [Concomitant]
     Route: 065
  12. SODIUM BICARBONATE [Concomitant]
     Indication: METABOLIC ACIDOSIS
     Route: 065
  13. ALBUMIN HUMAN [Concomitant]
     Route: 065
  14. PLASMANATE [Concomitant]
     Route: 065
  15. PHENOBARBITAL [Concomitant]
     Route: 065
  16. MIDAZOLAM [Concomitant]
     Route: 065
  17. FENTANEST [Concomitant]
     Route: 065
  18. CORTICOSTEROIDS (UNSPECIFIED) [Concomitant]
     Indication: HYPOTENSION
     Route: 065

REACTIONS (3)
  - CARDIAC FAILURE CONGESTIVE [None]
  - HYPOTENSION [None]
  - PERITONEAL DIALYSIS [None]
